FAERS Safety Report 6423509-8 (Version None)
Quarter: 2009Q4

REPORT INFORMATION
  Report Type: 
  Country: None (occurrence: None)
  Receive Date: 20091102
  Receipt Date: 20090918
  Transmission Date: 20100525
  Serious: Yes (Other)
  Sender: FDA-Public Use
  Company Number: US-BAXTER-2009BH011149

PATIENT
  Age: 24 Year
  Sex: Female
  Weight: 66 kg

DRUGS (3)
  1. HEPARIN SODIUM INJECTION [Suspect]
     Indication: ANTIPHOSPHOLIPID ANTIBODIES
     Route: 058
     Dates: start: 20070701, end: 20070705
  2. VITAMIN TAB [Concomitant]
     Indication: DRUG USE FOR UNKNOWN INDICATION
     Route: 065
  3. ARIXTRA [Concomitant]
     Indication: ANTIPHOSPHOLIPID ANTIBODIES
     Route: 065

REACTIONS (15)
  - ABDOMINAL PAIN [None]
  - BACTERIAL INFECTION [None]
  - CANDIDIASIS [None]
  - CHEST PAIN [None]
  - DYSPNOEA [None]
  - HYPERSENSITIVITY [None]
  - INJECTION SITE HAEMATOMA [None]
  - INJECTION SITE SWELLING [None]
  - MIGRAINE [None]
  - NAUSEA [None]
  - PRURITUS [None]
  - RESPIRATORY DISTRESS [None]
  - URTICARIA [None]
  - VAGINAL DISCHARGE [None]
  - VOMITING [None]
